FAERS Safety Report 9419340 (Version 1)
Quarter: 2013Q3

REPORT INFORMATION
  Report Type: Spontaneous
  Country: US (occurrence: US)
  Receive Date: 20130725
  Receipt Date: 20130725
  Transmission Date: 20140515
  Serious: No
  Sender: FDA-Public Use
  Company Number: US-GLAXOSMITHKLINE-A1016181A

PATIENT
  Age: 81 Year
  Sex: Male

DRUGS (2)
  1. LAMICTAL [Suspect]
     Indication: CONVULSION
     Dosage: 25MG PER DAY
     Route: 048
     Dates: start: 20130228, end: 20130315
  2. NO CONCURRENT MEDICATION [Concomitant]

REACTIONS (3)
  - Glossodynia [Recovering/Resolving]
  - Thermal burn [Recovering/Resolving]
  - Tongue ulceration [Recovering/Resolving]
